FAERS Safety Report 6788046-X (Version None)
Quarter: 2010Q2

REPORT INFORMATION
  Report Type: 
  Country: None (occurrence: None)
  Receive Date: 20100623
  Receipt Date: 20090514
  Transmission Date: 20101027
  Serious: Yes (Death, Other)
  Sender: FDA-Public Use
  Company Number: US-PFIZER INC-2007077066

PATIENT
  Sex: Female
  Weight: 67 kg

DRUGS (4)
  1. PROVERA [Suspect]
     Indication: HORMONE REPLACEMENT THERAPY
     Dosage: 2.5 MG, UNK
     Route: 048
     Dates: start: 19910101, end: 20010101
  2. PROVERA [Suspect]
     Dosage: 5 MG, UNK
     Route: 048
     Dates: start: 19910101, end: 20010101
  3. PREMARIN [Suspect]
     Indication: HORMONE REPLACEMENT THERAPY
     Dosage: 1.25 MG, UNK
     Route: 048
     Dates: start: 19910101, end: 20010101
  4. CYCRIN [Suspect]
     Indication: HORMONE REPLACEMENT THERAPY
     Dosage: 2.5 MG, UNK
     Route: 048
     Dates: start: 19910101, end: 20010101

REACTIONS (1)
  - BREAST CANCER FEMALE [None]
